FAERS Safety Report 26059597 (Version 1)
Quarter: 2025Q4

REPORT INFORMATION
  Report Type: Spontaneous
  Country: JP (occurrence: JP)
  Receive Date: 20251118
  Receipt Date: 20251118
  Transmission Date: 20260117
  Serious: Yes (Hospitalization)
  Sender: SHIONOGI
  Company Number: JP-shionogi-202500012229

PATIENT
  Age: 42 Year
  Sex: Female

DRUGS (2)
  1. CEFIDEROCOL [Suspect]
     Active Substance: CEFIDEROCOL
     Indication: Product used for unknown indication
     Route: 065
  2. CEFIDEROCOL [Suspect]
     Active Substance: CEFIDEROCOL
     Dosage: DOSE REDUCED
     Route: 065

REACTIONS (2)
  - Renal failure [Recovering/Resolving]
  - Posterior reversible encephalopathy syndrome [Recovered/Resolved]
